FAERS Safety Report 7646947-4 (Version None)
Quarter: 2011Q3

REPORT INFORMATION
  Report Type: 
  Country: None (occurrence: None)
  Receive Date: 20110801
  Receipt Date: 20110721
  Transmission Date: 20111222
  Serious: Yes (Hospitalization, Other)
  Sender: FDA-Public Use
  Company Number: US-BAYER-2011-013896

PATIENT
  Age: 41 Year
  Sex: Female
  Weight: 58.957 kg

DRUGS (14)
  1. PHENERGAN HCL [Concomitant]
  2. NEXIUM [Concomitant]
  3. AZITHROMYCIN [Concomitant]
     Dosage: UNK
     Dates: start: 20040101, end: 20100101
  4. YASMIN [Suspect]
     Indication: CONTRACEPTION
     Dosage: UNK
     Route: 048
     Dates: start: 20050101, end: 20090101
  5. VERAMYST [Concomitant]
     Dosage: 27.5 UNK, UNK
     Route: 045
     Dates: start: 20081201
  6. NITROFURANTOIN [Concomitant]
     Dosage: UNK
     Dates: start: 20040101, end: 20100101
  7. LEVAQUIN [Concomitant]
     Dosage: 500 MG, UNK
     Dates: start: 20081201
  8. CEPHALEXIN [Concomitant]
     Dosage: UNK
     Dates: start: 20040101, end: 20100101
  9. AUGMENTIN '125' [Concomitant]
     Dosage: UNK
     Dates: start: 20081201
  10. CIPROFLOXACIN [Concomitant]
     Dosage: UNK
     Dates: start: 20040101, end: 20100101
  11. DILAUDID [Concomitant]
  12. DROSPIRENONE AND ETHINYL ESTRADIOL [Suspect]
     Dosage: UNK
     Route: 048
     Dates: start: 20080801, end: 20080901
  13. FLUCONAZOLE [Concomitant]
     Dosage: 150 MG, UNK
     Dates: start: 20081201
  14. ERYTHROMYCIN [Concomitant]
     Dosage: UNK
     Dates: start: 20040101, end: 20100101

REACTIONS (5)
  - GALLBLADDER INJURY [None]
  - CHOLECYSTITIS CHRONIC [None]
  - PAIN [None]
  - THROMBOSIS [None]
  - PANCREATITIS [None]
